FAERS Safety Report 7227568-4 (Version None)
Quarter: 2011Q1

REPORT INFORMATION
  Report Type: 
  Country: None (occurrence: None)
  Receive Date: 20110114
  Receipt Date: 20110105
  Transmission Date: 20110831
  Serious: Yes (Other)
  Sender: FDA-Public Use
  Company Number: US-ROCHE-752834

PATIENT
  Sex: Female

DRUGS (2)
  1. CORTISONE [Concomitant]
  2. BONIVA [Suspect]
     Route: 065
     Dates: start: 20100801

REACTIONS (4)
  - URTICARIA [None]
  - NEURALGIA [None]
  - BONE MARROW OEDEMA [None]
  - PAIN IN EXTREMITY [None]
